FAERS Safety Report 19183663 (Version 1)
Quarter: 2021Q2

REPORT INFORMATION
  Report Type: Spontaneous
  Country: SG (occurrence: SG)
  Receive Date: 20210427
  Receipt Date: 20210427
  Transmission Date: 20210717
  Serious: Yes (Other)
  Sender: FDA-Public Use
  Company Number: SG-ROCHE-2818207

PATIENT

DRUGS (1)
  1. RANIBIZUMAB. [Suspect]
     Active Substance: RANIBIZUMAB
     Indication: RETINOPATHY OF PREMATURITY
     Dosage: 0.2 MG
     Route: 065

REACTIONS (4)
  - Pupillary disorder [Unknown]
  - Neovascularisation [Unknown]
  - Retinopathy of prematurity [Unknown]
  - Eye haemorrhage [Unknown]
